FAERS Safety Report 20578161 (Version 1)
Quarter: 2022Q1

REPORT INFORMATION
  Report Type: Spontaneous
  Country: US (occurrence: None)
  Receive Date: 20220310
  Receipt Date: 20220310
  Transmission Date: 20220423
  Serious: Yes (Hospitalization)
  Sender: FDA-Public Use
  Company Number: None

PATIENT
  Age: 72 Year
  Sex: Male
  Weight: 68 kg

DRUGS (1)
  1. INFLIXIMAB [Suspect]
     Active Substance: INFLIXIMAB
     Indication: Rheumatoid arthritis
     Route: 042
     Dates: start: 20020302

REACTIONS (10)
  - Histoplasmosis disseminated [None]
  - Dysphagia [None]
  - Inflammation [None]
  - Granuloma [None]
  - Adrenal mass [None]
  - Hypotension [None]
  - Acute kidney injury [None]
  - Weight decreased [None]
  - Histoplasmosis [None]
  - Biopsy site unspecified normal [None]

NARRATIVE: CASE EVENT DATE: 20211001
